FAERS Safety Report 14648587 (Version 1)
Quarter: 2018Q1

REPORT INFORMATION
  Report Type: Spontaneous
  Country: ES (occurrence: ES)
  Receive Date: 20180316
  Receipt Date: 20180316
  Transmission Date: 20180509
  Serious: Yes (Other)
  Sender: FDA-Public Use
  Company Number: ES-MYLANLABS-2018M1015866

PATIENT
  Age: 54 Year
  Sex: Female
  Weight: 90.5 kg

DRUGS (5)
  1. ALGIASDIN [Suspect]
     Active Substance: IBUPROFEN
     Indication: TRACHEITIS
     Dosage: 600 MG, Q3D
     Route: 048
     Dates: start: 20180118
  2. PREDNISONA CINFA [Suspect]
     Active Substance: PREDNISONE
     Indication: TRACHEITIS
     Dosage: 30 MG, QD
     Route: 048
     Dates: start: 20180119, end: 20180121
  3. AZITHROMYCIN ANHYDROUS. [Suspect]
     Active Substance: AZITHROMYCIN ANHYDROUS
     Indication: TRACHEITIS
     Dosage: 3 D?AS
     Route: 048
     Dates: start: 20180119
  4. ACIDO ACETILSALICILICO STADA [Concomitant]
     Active Substance: ASPIRIN
     Indication: PRODUCT USED FOR UNKNOWN INDICATION
     Dosage: 100 MG, QD
     Route: 048
     Dates: start: 20120228
  5. DAFALGAN CODEINE [Concomitant]
     Active Substance: ACETAMINOPHEN\CODEINE PHOSPHATE
     Indication: TRACHEITIS
     Dosage: UNK

REACTIONS (1)
  - Visual acuity reduced [Recovering/Resolving]

NARRATIVE: CASE EVENT DATE: 20180120
